FAERS Safety Report 9189353 (Version 3)
Quarter: 2013Q2

REPORT INFORMATION
  Report Type: Spontaneous
  Country: JP (occurrence: JP)
  Receive Date: 20130326
  Receipt Date: 20130611
  Transmission Date: 20140414
  Serious: Yes (Hospitalization)
  Sender: FDA-Public Use
  Company Number: PHHY2013JP028387

PATIENT
  Sex: Female

DRUGS (3)
  1. GLIVEC [Suspect]
     Indication: NEOPLASM RECURRENCE
     Dosage: UNK UKN, UNK
     Route: 048
  2. GLIVEC [Suspect]
     Dosage: UNK UKN, UNK
     Route: 048
  3. GLIVEC [Suspect]
     Dosage: 300 MG, DAILY
     Route: 048

REACTIONS (1)
  - Cholangitis acute [Recovered/Resolved]
